FAERS Safety Report 6709817-1 (Version None)
Quarter: 2010Q2

REPORT INFORMATION
  Report Type: 
  Country: None (occurrence: None)
  Receive Date: 20100504
  Receipt Date: 20100427
  Transmission Date: 20101027
  Serious: Yes (Hospitalization)
  Sender: FDA-Public Use
  Company Number: A0822149A

PATIENT
  Age: 46 Year
  Sex: Female
  Weight: 96.8 kg

DRUGS (1)
  1. AVANDIA [Suspect]
     Dosage: 4MG PER DAY
     Route: 048
     Dates: start: 20010101, end: 20070114

REACTIONS (6)
  - BRAIN INJURY [None]
  - CEREBROVASCULAR ACCIDENT [None]
  - DISABILITY [None]
  - EMOTIONAL DISTRESS [None]
  - NERVE INJURY [None]
  - PARALYSIS [None]
